FAERS Safety Report 5517821-4 (Version None)
Quarter: 2007Q4

REPORT INFORMATION
  Report Type: 
  Country: None (occurrence: None)
  Receive Date: 20071113
  Receipt Date: 20071102
  Transmission Date: 20080405
  Serious: Yes (Other)
  Sender: FDA-Public Use
  Company Number: 2007SP022346

PATIENT
  Sex: Female

DRUGS (1)
  1. MIRALAX [Suspect]
     Dosage: PO
     Route: 048

REACTIONS (2)
  - FAECES DISCOLOURED [None]
  - NAUSEA [None]
